FAERS Safety Report 4500678-8 (Version None)
Quarter: 2004Q4

REPORT INFORMATION
  Report Type: 
  Country: None (occurrence: None)
  Receive Date: 20041109
  Receipt Date: 20041025
  Transmission Date: 20050328
  Serious: Yes (Other)
  Sender: FDA-Public Use
  Company Number: USA041082190

PATIENT
  Age: 65 Year
  Sex: Female

DRUGS (1)
  1. EVISTA [Suspect]
     Indication: OSTEOPOROSIS
     Dates: start: 20040101

REACTIONS (5)
  - BREAST CANCER IN SITU [None]
  - CONDITION AGGRAVATED [None]
  - DEPRESSION [None]
  - FORMICATION [None]
  - GASTRIC DISORDER [None]
